FAERS Safety Report 6016936-4 (Version None)
Quarter: 2008Q4

REPORT INFORMATION
  Report Type: 
  Country: None (occurrence: None)
  Receive Date: 20081222
  Receipt Date: 20081217
  Transmission Date: 20090506
  Serious: Yes (Hospitalization)
  Sender: FDA-Public Use
  Company Number: JP-ABBOTT-07P-087-0362428-00

PATIENT
  Age: 78 Year
  Sex: Male

DRUGS (4)
  1. LEUPROLIDE ACETATE [Suspect]
     Indication: PROSTATE CANCER STAGE II
     Route: 058
     Dates: start: 20060407
  2. LEUPROLIDE ACETATE [Suspect]
     Dates: start: 20050627, end: 20060308
  3. AVISHOT [Concomitant]
     Indication: BENIGN PROSTATIC HYPERPLASIA
     Route: 048
  4. ZALTOPROFEN [Concomitant]
     Indication: DRUG USE FOR UNKNOWN INDICATION
     Dates: start: 20060510, end: 20060526

REACTIONS (5)
  - BLOOD ALKALINE PHOSPHATASE INCREASED [None]
  - BLOOD CREATININE INCREASED [None]
  - BLOOD UREA INCREASED [None]
  - GASTRIC ULCER HAEMORRHAGE [None]
  - HAEMOGLOBIN DECREASED [None]
